FAERS Safety Report 16379206 (Version 1)
Quarter: 2019Q2

REPORT INFORMATION
  Report Type: Spontaneous
  Country: FR (occurrence: FR)
  Receive Date: 20190531
  Receipt Date: 20190531
  Transmission Date: 20190711
  Serious: Yes (Life-Threatening, Hospitalization)
  Sender: FDA-Public Use
  Company Number: FR-TEVA-2019-FR-1056513

PATIENT
  Age: 44 Year
  Sex: Male

DRUGS (10)
  1. PROPOFOL. [Suspect]
     Active Substance: PROPOFOL
     Indication: SEDATION
     Route: 051
     Dates: start: 20190328, end: 20190329
  2. ALEPSAL (ATROPA BELLADONNA\CAFFEINE\PHENOBARBITAL) [Suspect]
     Active Substance: ATROPA BELLADONNA\CAFFEINE\PHENOBARBITAL
     Indication: EPILEPSY
     Route: 048
     Dates: end: 20190328
  3. LAMICTAL [Suspect]
     Active Substance: LAMOTRIGINE
     Indication: EPILEPSY
     Route: 048
  4. THIOPENTAL SODIQUE [Suspect]
     Active Substance: THIOPENTAL SODIUM
     Indication: SEDATION
     Route: 051
     Dates: start: 20190328, end: 20190328
  5. CEFTRIAXONE MYLAN [Suspect]
     Active Substance: CEFTRIAXONE
     Indication: HYPERTHERMIA
     Route: 051
     Dates: start: 20190328, end: 20190331
  6. FENTANYL. [Suspect]
     Active Substance: FENTANYL
     Indication: SEDATION
     Route: 051
     Dates: start: 20190328, end: 20190328
  7. CELOCURINE [Suspect]
     Active Substance: SUCCINYLCHOLINE
     Indication: SEDATION
     Route: 051
     Dates: start: 20190328, end: 20190328
  8. REMIFENTANIL MYLAN [Suspect]
     Active Substance: REMIFENTANIL
     Indication: SEDATION
     Route: 051
     Dates: start: 20190328, end: 20190329
  9. RIVOTRIL [Suspect]
     Active Substance: CLONAZEPAM
     Indication: STATUS EPILEPTICUS
     Route: 051
     Dates: start: 20190328, end: 20190328
  10. DILANTIN [Suspect]
     Active Substance: PHENYTOIN
     Indication: STATUS EPILEPTICUS
     Route: 051
     Dates: start: 20190328, end: 20190328

REACTIONS (3)
  - Disseminated intravascular coagulation [Recovered/Resolved with Sequelae]
  - Hepatitis fulminant [Recovered/Resolved with Sequelae]
  - Hepatocellular injury [Recovered/Resolved with Sequelae]

NARRATIVE: CASE EVENT DATE: 20190329
